FAERS Safety Report 4288048-1 (Version None)
Quarter: 2004Q1

REPORT INFORMATION
  Report Type: 
  Country: None (occurrence: None)
  Receive Date: 20040209
  Receipt Date: 20031126
  Transmission Date: 20041129
  Serious: No
  Sender: FDA-Public Use
  Company Number: US-GLAXOSMITHKLINE-A0441185A

PATIENT
  Age: 33 Year
  Sex: Female

DRUGS (4)
  1. PAXIL [Suspect]
     Indication: DEPRESSION
     Route: 048
  2. SINGULAIR [Concomitant]
  3. PROTONIX [Concomitant]
  4. NASONEX [Concomitant]

REACTIONS (2)
  - ABDOMINAL PAIN UPPER [None]
  - FEELING JITTERY [None]
